FAERS Safety Report 6201824-0 (Version None)
Quarter: 2009Q2

REPORT INFORMATION
  Report Type: 
  Country: None (occurrence: None)
  Receive Date: 20090526
  Receipt Date: 20090514
  Transmission Date: 20091009
  Serious: No
  Sender: FDA-Public Use
  Company Number: US-B.I. PHARMACEUTICALS,INC./RIDGEFIELD-2009-BP-06041BP

PATIENT
  Sex: Female

DRUGS (8)
  1. AGGRENOX [Suspect]
     Indication: TRANSIENT ISCHAEMIC ATTACK
     Route: 048
     Dates: start: 20050101
  2. AMITIPLALINE [Concomitant]
     Indication: HEADACHE
  3. SIMVASTATIN [Concomitant]
     Indication: BLOOD CHOLESTEROL INCREASED
  4. FIORONAL [Concomitant]
     Indication: HEADACHE
  5. AMBIEN [Concomitant]
     Indication: INSOMNIA
  6. ULTRASE MT20 [Concomitant]
     Indication: DIARRHOEA
  7. EVISTA [Concomitant]
     Indication: OSTEOPOROSIS
  8. LEVOTHYROXINE SODIUM [Concomitant]
     Indication: HYPOTHYROIDISM

REACTIONS (5)
  - ABDOMINAL PAIN [None]
  - AUTOIMMUNE HEPATITIS [None]
  - DIARRHOEA [None]
  - FLATULENCE [None]
  - WEIGHT DECREASED [None]
